FAERS Safety Report 6696170-5 (Version None)
Quarter: 2010Q2

REPORT INFORMATION
  Report Type: 
  Country: None (occurrence: None)
  Receive Date: 20100426
  Receipt Date: 20100415
  Transmission Date: 20101027
  Serious: Yes (Other)
  Sender: FDA-Public Use
  Company Number: FR-AMGEN-US407053

PATIENT
  Sex: Female
  Weight: 52 kg

DRUGS (4)
  1. ENBREL [Suspect]
     Indication: RHEUMATOID ARTHRITIS
     Route: 058
     Dates: start: 20070501, end: 20100120
  2. METHOTREXATE [Suspect]
     Indication: RHEUMATOID ARTHRITIS
     Route: 048
     Dates: start: 20030101, end: 20100121
  3. SPECIAFOLDINE [Concomitant]
     Dosage: UNKNOWN
     Route: 048
     Dates: start: 20030101, end: 20100101
  4. LEVOTHYROX [Concomitant]
     Route: 048
     Dates: start: 20090501

REACTIONS (2)
  - CYTOLYTIC HEPATITIS [None]
  - THYROID CANCER [None]
